FAERS Safety Report 14626679 (Version 1)
Quarter: 2018Q1

REPORT INFORMATION
  Report Type: Spontaneous
  Country: CN (occurrence: CN)
  Receive Date: 20180312
  Receipt Date: 20180312
  Transmission Date: 20180509
  Serious: Yes (Hospitalization)
  Sender: FDA-Public Use
  Company Number: CN-SHENZHEN TECHDOW PHARMACEUTICAL CO. LTD-CN-2018TEC0000011

PATIENT

DRUGS (3)
  1. HEPARIN SODIUM INJECTION USP, PRESERVATIVE FREE [Suspect]
     Active Substance: HEPARIN SODIUM
     Indication: THROMBOLYSIS
     Dosage: 600 IU/ PER HOUR
     Dates: start: 20170207
  2. UROKINASE [Suspect]
     Active Substance: UROKINASE
     Indication: THROMBOLYSIS
     Dosage: 50 IU, UNK
     Route: 042
     Dates: start: 20170207
  3. UROKINASE [Suspect]
     Active Substance: UROKINASE
     Dosage: 100 IU
     Route: 042
     Dates: start: 20180207

REACTIONS (2)
  - Shock haemorrhagic [Recovered/Resolved]
  - Gastrointestinal haemorrhage [Recovered/Resolved]

NARRATIVE: CASE EVENT DATE: 20170208
